FAERS Safety Report 5573151-6 (Version None)
Quarter: 2007Q4

REPORT INFORMATION
  Report Type: 
  Country: None (occurrence: None)
  Receive Date: 20071220
  Receipt Date: 20071211
  Transmission Date: 20080405
  Serious: Yes (Hospitalization)
  Sender: FDA-Public Use
  Company Number: 2007-05667

PATIENT
  Age: 82 Year
  Sex: Female

DRUGS (4)
  1. FIORICET [Suspect]
     Indication: ANALGESIA
     Dosage: 1 G, QID, ORAL
     Route: 048
  2. FLOXACILLIN SODIUM [Suspect]
     Indication: DEVICE RELATED INFECTION
     Dosage: INTRAVENOUS
     Route: 042
  3. RIFAMPICIN [Suspect]
     Indication: DEVICE RELATED INFECTION
  4. LEVOFLOXACIN [Suspect]
     Indication: DEVICE RELATED INFECTION

REACTIONS (2)
  - METABOLIC ACIDOSIS [None]
  - PYROGLUTAMATE INCREASED [None]
